FAERS Safety Report 15095299 (Version 1)
Quarter: 2018Q3

REPORT INFORMATION
  Report Type: Report from Study
  Country: IT (occurrence: IT)
  Receive Date: 20180702
  Receipt Date: 20180702
  Transmission Date: 20181010
  Serious: Yes (Hospitalization)
  Sender: FDA-Public Use
  Company Number: IT-TEVA-2018-IT-917491

PATIENT
  Age: 61 Year
  Sex: Male

DRUGS (13)
  1. DOBETIN 20 MICROGRAMS / ML ORAL DROPS, SOLUTION [Concomitant]
     Route: 065
  2. NORVASC [Concomitant]
     Active Substance: AMLODIPINE BESYLATE
     Route: 065
  3. XATRAL [Concomitant]
     Active Substance: ALFUZOSIN
     Route: 065
  4. GABAPENTIN. [Concomitant]
     Active Substance: GABAPENTIN
     Route: 065
  5. CARDICOR 5 MG COMPRESSE COVERED WITH FILM [Concomitant]
     Route: 065
  6. ASCRIPTIN [Concomitant]
     Active Substance: ASPIRIN
     Route: 065
  7. LASIX [Concomitant]
     Active Substance: FUROSEMIDE
     Route: 065
  8. FINASTERIDE. [Concomitant]
     Active Substance: FINASTERIDE
     Route: 065
  9. BENERVA 300 MG COMPRESSE GASTRORESISTENTI [Concomitant]
     Route: 065
  10. AKINETON 2 MG TABLETS [Concomitant]
     Route: 065
  11. CITALOPRAM [Suspect]
     Active Substance: CITALOPRAM HYDROBROMIDE
     Indication: DEPRESSION
     Route: 048
  12. HALDOL [Concomitant]
     Active Substance: HALOPERIDOL
     Route: 065
  13. NEXIUM 20 MG COMPRESSE GASTRORESISTENTI [Concomitant]
     Route: 065

REACTIONS (3)
  - Bradycardia [Recovered/Resolved]
  - Oxygen saturation decreased [Recovered/Resolved]
  - Drug abuse [Recovered/Resolved]

NARRATIVE: CASE EVENT DATE: 20171103
